FAERS Safety Report 18355158 (Version 2)
Quarter: 2020Q4

REPORT INFORMATION
  Report Type: Report from Study
  Country: CN (occurrence: CN)
  Receive Date: 20201007
  Receipt Date: 20201020
  Transmission Date: 20210114
  Serious: Yes (Hospitalization)
  Sender: FDA-Public Use
  Company Number: CN-BRISTOL-MYERS SQUIBB COMPANY-BMS-2020-080684

PATIENT
  Sex: Male

DRUGS (1)
  1. NIVOLUMAB [Suspect]
     Active Substance: NIVOLUMAB
     Indication: NON-SMALL CELL LUNG CANCER
     Dosage: 200 MILLIGRAM, Q2WK
     Route: 042
     Dates: start: 20200621

REACTIONS (3)
  - Pyrexia [Recovered/Resolved]
  - White blood cell count increased [Recovered/Resolved]
  - Pneumonitis [Recovered/Resolved]
